FAERS Safety Report 14473687 (Version 1)
Quarter: 2018Q1

REPORT INFORMATION
  Report Type: Spontaneous
  Country: CO (occurrence: CO)
  Receive Date: 20180201
  Receipt Date: 20180201
  Transmission Date: 20180509
  Serious: Yes (Hospitalization, Other)
  Sender: FDA-Public Use
  Company Number: CO-BAYER-2018-020492

PATIENT
  Sex: Female

DRUGS (1)
  1. ULTRAVIST? 300 [Suspect]
     Active Substance: IOPROMIDE
     Dosage: UNK, ONCE

REACTIONS (1)
  - Hypothermia [None]
